FAERS Safety Report 8865049 (Version 1)
Quarter: 2012Q4

REPORT INFORMATION
  Report Type: 
  Country: US (occurrence: US)
  Receive Date: 20121024
  Receipt Date: 20121024
  Transmission Date: 20130627
  Serious: No
  Sender: FDA-Public Use
  Company Number: US-AMGEN-USASP2012000723

PATIENT
  Age: 60 Year
  Sex: Female
  Weight: 81.63 kg

DRUGS (11)
  1. ENBREL [Suspect]
     Indication: PSORIASIS
     Dosage: 50 mg, 2 times/wk
  2. HUMIRA [Concomitant]
     Dosage: UNK
     Dates: start: 201112
  3. VYTORIN [Concomitant]
     Dosage: UNK
     Route: 048
  4. SINGULAIR [Concomitant]
     Dosage: 10 mg, UNK
     Route: 048
  5. PREDNISONE [Concomitant]
     Dosage: 1 mg, UNK
     Route: 048
  6. HYDROXYZINE PAM [Concomitant]
     Dosage: 25 mg, UNK
     Route: 048
  7. CHANTIX [Concomitant]
     Dosage: 0.5 mg, UNK
     Route: 048
  8. VENTOLIN HFA [Concomitant]
     Dosage: UNK mug, UNK
  9. ALBUTEROL [Concomitant]
     Dosage: 90 mug, UNK
  10. SPIRIVA [Concomitant]
     Dosage: UNK
  11. SYMBICORT [Concomitant]
     Dosage: UNK

REACTIONS (1)
  - Drug ineffective [Unknown]
